FAERS Safety Report 12504789 (Version 2)
Quarter: 2016Q3

REPORT INFORMATION
  Report Type: Spontaneous
  Country: TH (occurrence: TH)
  Receive Date: 20160628
  Receipt Date: 20160706
  Transmission Date: 20161109
  Serious: Yes (Death, Hospitalization, Other)
  Sender: FDA-Public Use
  Company Number: TH-BAXTER-2016BAX033152

PATIENT
  Age: 83 Year
  Sex: Female

DRUGS (1)
  1. DIANEAL PD-2 WITH DEXTROSE [Suspect]
     Active Substance: CALCIUM CHLORIDE\DEXTROSE\MAGNESIUM CHLORIDE\SODIUM CHLORIDE\SODIUM LACTATE
     Indication: PERITONEAL DIALYSIS
     Route: 033
     Dates: start: 20160107, end: 20160525

REACTIONS (5)
  - Mobility decreased [Unknown]
  - Loss of consciousness [Unknown]
  - Death [Fatal]
  - Fluid overload [Unknown]
  - Pyrexia [Unknown]

NARRATIVE: CASE EVENT DATE: 20160525
